FAERS Safety Report 8033146-X (Version None)
Quarter: 2012Q1

REPORT INFORMATION
  Report Type: 
  Country: None (occurrence: None)
  Receive Date: 20120110
  Receipt Date: 20120110
  Transmission Date: 20120608
  Serious: No
  Sender: FDA-Public Use
  Company Number: None

PATIENT
  Age: 70 Year
  Sex: Female

DRUGS (1)
  1. TARCEVA [Suspect]
     Indication: NON-SMALL CELL LUNG CANCER
     Dosage: 150 MG

REACTIONS (5)
  - DRY SKIN [None]
  - THERAPEUTIC RESPONSE UNEXPECTED [None]
  - EYE DISORDER [None]
  - SKIN EXFOLIATION [None]
  - ALOPECIA [None]
